FAERS Safety Report 19364843 (Version 1)
Quarter: 2021Q2

REPORT INFORMATION
  Report Type: Report from Study
  Country: US (occurrence: US)
  Receive Date: 20210603
  Receipt Date: 20210603
  Transmission Date: 20210717
  Serious: Yes (Death)
  Sender: FDA-Public Use
  Company Number: US-BAYER-2021-149364

PATIENT
  Age: 53 Year
  Sex: Male

DRUGS (1)
  1. ASPIRIN. [Suspect]
     Active Substance: ASPIRIN
     Dosage: UNK

REACTIONS (11)
  - Anion gap abnormal [Fatal]
  - Respiratory distress [Fatal]
  - Tachypnoea [Fatal]
  - Metabolic acidosis [Fatal]
  - Respiratory acidosis [Fatal]
  - Toxicity to various agents [Fatal]
  - Hypoxia [Fatal]
  - Tachycardia [Fatal]
  - Blood chloride abnormal [Fatal]
  - Pyrexia [Fatal]
  - Cardiac arrest [Fatal]
